FAERS Safety Report 5216466-3 (Version None)
Quarter: 2006Q4

REPORT INFORMATION
  Report Type: 
  Country: None (occurrence: None)
  Receive Date: 20061129
  Receipt Date: 20030618
  Transmission Date: 20070319
  Serious: Yes (Death)
  Sender: FDA-Public Use
  Company Number: 2003UW06745

PATIENT
  Age: 77 Year
  Sex: Female

DRUGS (1)
  1. FASLODEX [Suspect]

REACTIONS (1)
  - BREAST CANCER METASTATIC [None]
